FAERS Safety Report 9105503 (Version 1)
Quarter: 2013Q1

REPORT INFORMATION
  Report Type: Report from Study
  Country: US (occurrence: US)
  Receive Date: 20130220
  Receipt Date: 20130220
  Transmission Date: 20140127
  Serious: Yes (Hospitalization)
  Sender: FDA-Public Use
  Company Number: US-UCBSA-078437

PATIENT
  Age: 27 Year
  Sex: Male
  Weight: 67.13 kg

DRUGS (8)
  1. CIMZIA [Suspect]
     Indication: CROHN^S DISEASE
     Dosage: DOSE: 200 MG
     Route: 058
     Dates: start: 20090609, end: 200906
  2. CIMZIA [Suspect]
     Indication: CROHN^S DISEASE
     Dosage: DOSE: 400 MG
     Route: 058
     Dates: start: 20090622
  3. LAMICTAL [Concomitant]
  4. CLONAZEPAM [Concomitant]
     Dosage: 1 MG BID AND 0.5 MG IN AFTERNOON
  5. INVANZ [Concomitant]
  6. PREDNISONE [Concomitant]
     Indication: CROHN^S DISEASE
     Dates: start: 20090601
  7. OXYCONTIN [Concomitant]
  8. DILAUDID [Concomitant]
     Dosage: 4 MG 2-3 HOURS PRN

REACTIONS (1)
  - Pelvic abscess [Recovered/Resolved]
